FAERS Safety Report 9372742 (Version 1)
Quarter: 2013Q2

REPORT INFORMATION
  Report Type: Report from Study
  Country: US (occurrence: US)
  Receive Date: 20130627
  Receipt Date: 20130627
  Transmission Date: 20140414
  Serious: Yes (Other)
  Sender: FDA-Public Use
  Company Number: US-MYLANLABS-2013S1007244

PATIENT
  Age: 44 Year
  Sex: Male

DRUGS (9)
  1. CLOZAPINE TABLETS [Suspect]
     Route: 048
     Dates: start: 20121213, end: 20130306
  2. CLOZAPINE TABLETS [Suspect]
     Route: 048
     Dates: start: 20121213, end: 20130306
  3. TEGRETOL [Concomitant]
  4. THORAZINE /00011901/ [Concomitant]
  5. KLONOPIN [Concomitant]
  6. BENADRYL [Concomitant]
  7. PROLIXIN /00000602/ [Concomitant]
  8. SYNTHROID [Concomitant]
  9. VITAMIN E [Concomitant]

REACTIONS (1)
  - Granulocytopenia [Not Recovered/Not Resolved]
